FAERS Safety Report 6411413-0 (Version None)
Quarter: 2009Q4

REPORT INFORMATION
  Report Type: 
  Country: None (occurrence: None)
  Receive Date: 20091023
  Receipt Date: 20091015
  Transmission Date: 20100525
  Serious: Yes (Hospitalization)
  Sender: FDA-Public Use
  Company Number: US-ELI_LILLY_AND_COMPANY-US200801004168

PATIENT
  Sex: Male

DRUGS (10)
  1. BYETTA [Suspect]
     Indication: TYPE 2 DIABETES MELLITUS
     Dosage: 10 UG, 2/D
     Route: 058
     Dates: start: 20070601, end: 20071008
  2. HYDROCHLOROTHIAZIDE [Concomitant]
     Dosage: 25 MG, DAILY (1/D)
     Dates: end: 20071001
  3. LISINOPRIL [Concomitant]
     Dosage: 20 MG, DAILY (1/D)
     Dates: end: 20071001
  4. ASPIRIN [Concomitant]
     Dosage: 81 MG, UNKNOWN
  5. METFORMIN HCL [Concomitant]
     Dosage: 1000 MG, 2/D
  6. LOPRESSOR [Concomitant]
     Dosage: UNK, UNKNOWN
  7. ZOLOFT [Concomitant]
     Dosage: UNK, UNKNOWN
  8. LANTUS [Concomitant]
     Dosage: 30 U, 2/D
  9. NOVOLOG [Concomitant]
     Dosage: UNK, AS NEEDED
  10. ANALGESICS [Concomitant]
     Indication: PANCREATITIS
     Dosage: UNK, UNKNOWN
     Dates: start: 20071001

REACTIONS (2)
  - PANCREATITIS [None]
  - RENAL DISORDER [None]
